FAERS Safety Report 4773117-X (Version None)
Quarter: 2005Q3

REPORT INFORMATION
  Report Type: 
  Country: None (occurrence: None)
  Receive Date: 20050915
  Receipt Date: 20050915
  Transmission Date: 20060218
  Serious: Yes (Hospitalization)
  Sender: FDA-Public Use
  Company Number: None

PATIENT
  Age: 79 Year
  Sex: Male
  Weight: 69.5 kg

DRUGS (9)
  1. WARFARIN     2.5MG [Suspect]
     Indication: DEEP VEIN THROMBOSIS
     Dosage: 2.5MG DAILY EXCEPT 1.25MG T/R/S     PO
     Route: 048
     Dates: start: 20050401, end: 20050831
  2. ALBUTEROL [Concomitant]
  3. ALBUTEROL SO4 [Concomitant]
  4. ATENOLOL [Concomitant]
  5. DILTIAZEM HCL [Concomitant]
  6. DOXAZOSIN MESYLATE [Concomitant]
  7. FLUNISOLIDE [Concomitant]
  8. FORMOTEROL FUMARATE [Concomitant]
  9. FUROSEMIDE [Concomitant]

REACTIONS (3)
  - EAR HAEMORRHAGE [None]
  - INTERNATIONAL NORMALISED RATIO INCREASED [None]
  - TRANSFUSION REACTION [None]
